FAERS Safety Report 20645482 (Version 2)
Quarter: 2022Q2

REPORT INFORMATION
  Report Type: Spontaneous
  Country: CA (occurrence: CA)
  Receive Date: 20220328
  Receipt Date: 20220419
  Transmission Date: 20220721
  Serious: Yes (Other)
  Sender: FDA-Public Use
  Company Number: CA-TEVA-2022-CA-2021921

PATIENT
  Age: 40 Year
  Sex: Male
  Weight: 140 kg

DRUGS (32)
  1. AMLODIPINE BESYLATE [Suspect]
     Active Substance: AMLODIPINE BESYLATE
     Indication: Secondary progressive multiple sclerosis
     Route: 048
  2. BISOPROLOL [Suspect]
     Active Substance: BISOPROLOL
     Indication: Secondary progressive multiple sclerosis
     Route: 048
  3. GABAPENTIN [Suspect]
     Active Substance: GABAPENTIN
     Indication: Product used for unknown indication
     Route: 065
  4. LORAZEPAM [Suspect]
     Active Substance: LORAZEPAM
     Indication: Product used for unknown indication
     Route: 048
  5. PRAMIPEXOLE DIHYDROCHLORIDE [Suspect]
     Active Substance: PRAMIPEXOLE DIHYDROCHLORIDE
     Indication: Secondary progressive multiple sclerosis
     Route: 048
  6. RABEPRAZOLE [Suspect]
     Active Substance: RABEPRAZOLE
     Indication: Secondary progressive multiple sclerosis
     Route: 048
  7. ROSUVASTATIN CALCIUM [Suspect]
     Active Substance: ROSUVASTATIN CALCIUM
     Indication: Product used for unknown indication
     Route: 065
  8. ROSUVASTATIN CALCIUM [Suspect]
     Active Substance: ROSUVASTATIN CALCIUM
     Route: 048
  9. TAMSULOSIN [Suspect]
     Active Substance: TAMSULOSIN
     Indication: Secondary progressive multiple sclerosis
     Route: 048
  10. BACLOFEN [Suspect]
     Active Substance: BACLOFEN
     Indication: Product used for unknown indication
     Route: 048
  11. BACLOFEN [Suspect]
     Active Substance: BACLOFEN
     Dosage: DOSAGE FORM: UNKNOWN
     Route: 065
  12. DOXEPIN HYDROCHLORIDE [Suspect]
     Active Substance: DOXEPIN HYDROCHLORIDE
     Indication: Product used for unknown indication
     Route: 065
  13. DALFAMPRIDINE [Suspect]
     Active Substance: DALFAMPRIDINE
     Indication: Product used for unknown indication
     Route: 065
  14. REBIF [Suspect]
     Active Substance: INTERFERON BETA-1A
     Indication: Product used for unknown indication
     Route: 058
  15. TECFIDERA [Suspect]
     Active Substance: DIMETHYL FUMARATE
     Indication: Product used for unknown indication
     Route: 065
  16. AMLODIPINE BESYLATE\CANDESARTAN CILEXETIL [Suspect]
     Active Substance: AMLODIPINE BESYLATE\CANDESARTAN CILEXETIL
     Indication: Secondary progressive multiple sclerosis
     Route: 048
  17. AMLODIPINE BESYLATE\LISINOPRIL [Suspect]
     Active Substance: AMLODIPINE BESYLATE\LISINOPRIL
     Indication: Secondary progressive multiple sclerosis
     Route: 048
  18. BISOPROLOL FUMARATE\HYDROCHLOROTHIAZIDE [Suspect]
     Active Substance: BISOPROLOL FUMARATE\HYDROCHLOROTHIAZIDE
     Indication: Secondary progressive multiple sclerosis
     Route: 048
  19. LORAZEPAM [Suspect]
     Active Substance: LORAZEPAM
     Indication: Product used for unknown indication
     Route: 048
  20. MAYZENT [Suspect]
     Active Substance: SIPONIMOD
     Indication: Secondary progressive multiple sclerosis
     Route: 065
  21. ACETYLSALICYLIC ACID/CODEINE [Concomitant]
     Indication: Product used for unknown indication
     Route: 065
  22. ALLOPURINOL\BENZBROMARONE [Concomitant]
     Active Substance: ALLOPURINOL\BENZBROMARONE
     Indication: Product used for unknown indication
     Route: 048
  23. ASPIRIN [Concomitant]
     Active Substance: ASPIRIN
     Indication: Product used for unknown indication
     Route: 065
  24. ATIVAN [Concomitant]
     Active Substance: LORAZEPAM
     Indication: Product used for unknown indication
     Route: 065
  25. CALCIUM DPANTOTHENATE/NICOTINAMIDE/PYRIDOXINEHYDROCHLORIDE/RIBOFLAVIN [Concomitant]
     Indication: Product used for unknown indication
     Route: 065
  26. CALCIUM [Concomitant]
     Active Substance: CALCIUM
     Indication: Product used for unknown indication
     Route: 065
  27. RABEPRAZOLE SODIUM [Concomitant]
     Active Substance: RABEPRAZOLE SODIUM
     Indication: Product used for unknown indication
     Route: 065
  28. VITAMIN D3 [Concomitant]
     Active Substance: CHOLECALCIFEROL
     Indication: Product used for unknown indication
     Route: 065
  29. VITAMIN D3 [Concomitant]
     Active Substance: CHOLECALCIFEROL
     Route: 065
  30. MINERALS\VITAMINS [Concomitant]
     Active Substance: MINERALS\VITAMINS
     Indication: Product used for unknown indication
     Route: 048
  31. INDAPAMIDE\PERINDOPRIL [Concomitant]
     Active Substance: INDAPAMIDE\PERINDOPRIL
     Indication: Product used for unknown indication
     Route: 065
  32. TEMAZEPAM [Suspect]
     Active Substance: TEMAZEPAM

REACTIONS (25)
  - Anxiety [Unknown]
  - Ataxia [Unknown]
  - Balance disorder [Unknown]
  - Bradycardia [Unknown]
  - Central nervous system lesion [Unknown]
  - Dizziness [Unknown]
  - Dysarthria [Unknown]
  - Erectile dysfunction [Unknown]
  - Fall [Unknown]
  - Gait spastic [Unknown]
  - Hypertonic bladder [Unknown]
  - Hypoaesthesia [Unknown]
  - Insomnia [Unknown]
  - Memory impairment [Unknown]
  - Micturition urgency [Unknown]
  - Monoparesis [Unknown]
  - Movement disorder [Unknown]
  - Multiple sclerosis relapse [Unknown]
  - Muscle spasticity [Unknown]
  - Needle fatigue [Unknown]
  - Nocturia [Unknown]
  - Pain [Unknown]
  - Pollakiuria [Unknown]
  - Relapsing-remitting multiple sclerosis [Unknown]
  - Product use in unapproved indication [Recovered/Resolved]
